FAERS Safety Report 5355342-2 (Version None)
Quarter: 2007Q2

REPORT INFORMATION
  Report Type: 
  Country: None (occurrence: None)
  Receive Date: 20070604
  Receipt Date: 20060915
  Transmission Date: 20071010
  Serious: Yes (Hospitalization)
  Sender: FDA-Public Use
  Company Number: 8018913

PATIENT
  Age: 10 Year
  Sex: Male

DRUGS (6)
  1. METHYLPHENIDATE HCL [Suspect]
     Indication: RESTLESSNESS
     Dosage: 5 MG /D
  2. HALOPERIDOL [Suspect]
     Indication: ABNORMAL BEHAVIOUR
     Dosage: 5 MG PRIN IM
     Route: 030
  3. HALOPERIDOL [Suspect]
     Indication: ABNORMAL BEHAVIOUR
     Dosage: 5 MG PRN IM
     Route: 030
  4. LORAZEPAM [Suspect]
     Indication: ABNORMAL BEHAVIOUR
     Dosage: 2 MG PRN IM
     Route: 030
  5. LORAZEPAM [Suspect]
     Indication: ABNORMAL BEHAVIOUR
     Dosage: 2 MG PRN IM
     Route: 030
  6. DIPHENHYDRAMINE HCL [Concomitant]

REACTIONS (1)
  - NEUROLEPTIC MALIGNANT SYNDROME [None]
